FAERS Safety Report 20230202 (Version 3)
Quarter: 2022Q1

REPORT INFORMATION
  Report Type: Report from Study
  Country: ES (occurrence: ES)
  Receive Date: 20211226
  Receipt Date: 20220131
  Transmission Date: 20220423
  Serious: Yes (Death, Life-Threatening, Hospitalization, Disabling, Other)
  Sender: FDA-Public Use
  Company Number: ES-AMGEN-ESPCT2021204838

PATIENT
  Age: 70 Year
  Sex: Female
  Weight: 50.6 kg

DRUGS (11)
  1. AMG-510 [Suspect]
     Active Substance: AMG-510
     Indication: Non-small cell lung cancer
     Dosage: 960 MILLIGRAM
     Route: 048
     Dates: start: 20210916, end: 20211110
  2. DEXKETOPROFEN TROMETAMOL [Concomitant]
     Active Substance: DEXKETOPROFEN TROMETAMOL
     Dosage: 25 MILLIGRAM
     Route: 048
     Dates: start: 20211031, end: 20211212
  3. IBUPROFEN [Concomitant]
     Active Substance: IBUPROFEN
     Dosage: 600 MILLIGRAM
     Route: 048
     Dates: start: 20210219, end: 20211212
  4. PREDNISONE [Concomitant]
     Active Substance: PREDNISONE
     Dosage: 30 MILLIGRAM
     Route: 048
     Dates: start: 20210916, end: 20211212
  5. FAMOTIDINA [Concomitant]
     Dosage: 40 MILLIGRAM
     Route: 048
     Dates: start: 20210916, end: 20211212
  6. ATORVASTATIN [Concomitant]
     Active Substance: ATORVASTATIN
     Dosage: 10 MILLIGRAM
     Route: 048
     Dates: start: 20000101, end: 20211212
  7. TRAMADOL [Concomitant]
     Active Substance: TRAMADOL
     Dosage: 37.5 MILLIGRAM
     Route: 048
     Dates: start: 20210219, end: 20211212
  8. METOCLOPRAMIDE [Concomitant]
     Active Substance: METOCLOPRAMIDE
     Dosage: 10 MILLILITER AND 15 MILLIGRAM
     Route: 048
     Dates: start: 20210916, end: 20211212
  9. LOPERAMIDA [LOPERAMIDE] [Concomitant]
     Dosage: 10 MILLIGRAM
     Route: 048
     Dates: start: 20210916, end: 20211212
  10. RESOURCE PROTEIN [NUTRIENTS NOS] [Concomitant]
     Dosage: 400 MILLILITER
     Route: 048
     Dates: start: 20211014, end: 20211212
  11. LYRICA [Concomitant]
     Active Substance: PREGABALIN
     Dosage: 25 MILLIGRAM
     Route: 048
     Dates: start: 20211014, end: 20211212

REACTIONS (1)
  - Non-small cell lung cancer [Fatal]

NARRATIVE: CASE EVENT DATE: 20211207
